FAERS Safety Report 12679236 (Version 1)
Quarter: 2016Q3

REPORT INFORMATION
  Report Type: Spontaneous
  Country: US (occurrence: None)
  Receive Date: 20160823
  Receipt Date: 20160823
  Transmission Date: 20161109
  Serious: Yes (Disabling)
  Sender: FDA-Public Use
  Company Number: None

PATIENT
  Age: 48 Year
  Sex: Female

DRUGS (3)
  1. SILVER SULFADIZINE [Suspect]
     Active Substance: SILVER SULFADIAZINE
     Indication: WOUND
     Route: 061
     Dates: start: 20160821
  2. ANTIBIOTICS [Concomitant]
     Active Substance: UNSPECIFIED INGREDIENT
  3. MUPIROCIN. [Concomitant]
     Active Substance: MUPIROCIN

REACTIONS (4)
  - Application site erythema [None]
  - Wound secretion [None]
  - Application site swelling [None]
  - Condition aggravated [None]

NARRATIVE: CASE EVENT DATE: 20160821
